FAERS Safety Report 9191076 (Version 1)
Quarter: 2013Q1

REPORT INFORMATION
  Report Type: Spontaneous
  Country: US (occurrence: US)
  Receive Date: 20130326
  Receipt Date: 20130326
  Transmission Date: 20140127
  Serious: No
  Sender: FDA-Public Use
  Company Number: US-ASTRAZENECA-2013SE16159

PATIENT
  Sex: Female

DRUGS (1)
  1. SEROQUEL XR [Suspect]
     Route: 048
     Dates: start: 201211

REACTIONS (4)
  - Hangover [Unknown]
  - Feeling abnormal [Unknown]
  - Middle insomnia [Unknown]
  - Abnormal sleep-related event [Unknown]
